FAERS Safety Report 25756629 (Version 1)
Quarter: 2025Q3

REPORT INFORMATION
  Report Type: Spontaneous
  Country: US (occurrence: None)
  Receive Date: 20250903
  Receipt Date: 20250903
  Transmission Date: 20251021
  Serious: Yes (Other)
  Sender: HQ SPECIALTY
  Company Number: US-HQ-20250063

PATIENT
  Age: 49 Year
  Sex: Male

DRUGS (2)
  1. LINEZOLID [Suspect]
     Active Substance: LINEZOLID
     Indication: Skin necrosis
  2. CIPROFLOXACIN [Concomitant]
     Active Substance: CIPROFLOXACIN
     Indication: Skin necrosis

REACTIONS (2)
  - Glossitis [Unknown]
  - Papillitis [Unknown]
